FAERS Safety Report 6003628-0 (Version None)
Quarter: 2008Q4

REPORT INFORMATION
  Report Type: 
  Country: None (occurrence: None)
  Receive Date: 20081212
  Receipt Date: 20081127
  Transmission Date: 20090506
  Serious: Yes (Hospitalization)
  Sender: FDA-Public Use
  Company Number: DSA_32865_2008

PATIENT
  Sex: Female

DRUGS (7)
  1. LORAZEPAM [Suspect]
     Indication: DRUG USE FOR UNKNOWN INDICATION
     Dosage: (2.5 MG, FREQUENCY UNKNOWN ORAL)
     Route: 048
  2. ALDALIX (ALDALIX - FUROSEMIDE/SPIRONALACTONE) (NOT SPECIFIED) [Suspect]
     Indication: DRUG USE FOR UNKNOWN INDICATION
     Dosage: (70 MG QD ORAL)
     Route: 048
     Dates: start: 20071211, end: 20080128
  3. CORDARONE [Suspect]
     Indication: DRUG USE FOR UNKNOWN INDICATION
     Dosage: (200 MG QD ORAL)
     Route: 048
     Dates: start: 20041201, end: 20080128
  4. COUMADIN [Suspect]
     Indication: DRUG USE FOR UNKNOWN INDICATION
     Dosage: (2 DF, FREQUENCY UNKNOWN ORAL)
     Route: 048
  5. HEMIGOXINE NATIVLLE (HEMIGOXINE NATIVELLE - DIGOXIN) (NOT SPECIFIED) [Suspect]
     Indication: DRUG USE FOR UNKNOWN INDICATION
     Dosage: (0.125 MG QD ORAL)
     Route: 048
     Dates: start: 20071211, end: 20080128
  6. TAREG (TAREG - VALSARTAN) (NOT SPECIFIED) [Suspect]
     Indication: DRUG USE FOR UNKNOWN INDICATION
     Dosage: (160 MG QD ORAL)
     Route: 048
     Dates: start: 20071211, end: 20080128
  7. CRESTOR [Concomitant]

REACTIONS (6)
  - BRADYCARDIA [None]
  - CARDIOACTIVE DRUG LEVEL ABOVE THERAPEUTIC [None]
  - ORTHOPNOEA [None]
  - PULMONARY ARTERIAL HYPERTENSION [None]
  - SINOATRIAL BLOCK [None]
  - VENTRICULAR EXTRASYSTOLES [None]
